FAERS Safety Report 7895157-4 (Version None)
Quarter: 2011Q4

REPORT INFORMATION
  Report Type: 
  Country: None (occurrence: None)
  Receive Date: 20111106
  Receipt Date: 20110823
  Transmission Date: 20120403
  Serious: No
  Sender: FDA-Public Use
  Company Number: US-AMGEN-USASP2011043201

PATIENT
  Sex: Female

DRUGS (3)
  1. ENBREL [Suspect]
     Indication: PSORIATIC ARTHROPATHY
     Dosage: UNK UNK, 2 TIMES/WK
     Dates: start: 20110701
  2. HUMIRA [Concomitant]
  3. ENBREL [Suspect]
     Dosage: UNK UNK, 2 TIMES/WK
     Dates: start: 20071213, end: 20090101

REACTIONS (8)
  - DEATH OF RELATIVE [None]
  - THERAPEUTIC RESPONSE DECREASED [None]
  - PSORIATIC ARTHROPATHY [None]
  - INJECTION SITE PAIN [None]
  - STRESS [None]
  - CRYING [None]
  - FATIGUE [None]
  - DIARRHOEA [None]
